FAERS Safety Report 6193580-X (Version None)
Quarter: 2009Q2

REPORT INFORMATION
  Report Type: 
  Country: None (occurrence: None)
  Receive Date: 20090512
  Receipt Date: 20090506
  Transmission Date: 20091009
  Serious: Yes (Hospitalization)
  Sender: FDA-Public Use
  Company Number: CHPA2009US11044

PATIENT
  Age: 47 Year
  Sex: Female
  Weight: 49.9 kg

DRUGS (2)
  1. BENEFIBER W/WHEAT DEXTRIN [Suspect]
     Indication: NUTRITIONAL SUPPORT
     Dosage: 1 TSP, BID, ORAL ; 1 TSP, QD, ORAL
     Route: 048
     Dates: start: 20080501
  2. BENEFIBER W/WHEAT DEXTRIN [Suspect]
     Indication: NUTRITIONAL SUPPORT
     Dosage: 1 TSP, BID, ORAL ; 1 TSP, QD, ORAL
     Route: 048
     Dates: start: 20090101

REACTIONS (3)
  - ASTHENIA [None]
  - CEREBROVASCULAR ACCIDENT [None]
  - NAUSEA [None]
